FAERS Safety Report 9815427 (Version 1)
Quarter: 2014Q1

REPORT INFORMATION
  Report Type: Spontaneous
  Country: US (occurrence: US)
  Receive Date: 20140114
  Receipt Date: 20140114
  Transmission Date: 20141002
  Serious: Yes (Hospitalization)
  Sender: FDA-Public Use
  Company Number: US-SA-2014SA003189

PATIENT
  Age: 78 Year
  Sex: Female

DRUGS (10)
  1. FUROSEMIDE [Suspect]
     Indication: PRODUCT USED FOR UNKNOWN INDICATION
     Route: 065
  2. FUROSEMIDE [Suspect]
     Indication: PRODUCT USED FOR UNKNOWN INDICATION
     Route: 065
  3. LISINOPRIL [Suspect]
     Indication: PRODUCT USED FOR UNKNOWN INDICATION
     Route: 065
  4. GABAPENTIN [Suspect]
     Indication: NEURALGIA
     Route: 065
  5. SIMVASTATIN [Concomitant]
  6. METFORMIN [Concomitant]
  7. CITALOPRAM [Concomitant]
  8. FLUTICASONE PROPIONATE [Concomitant]
     Dosage: INHALER
     Route: 055
  9. ALBUTEROL [Concomitant]
     Route: 055
  10. METOLAZONE [Concomitant]

REACTIONS (10)
  - Renal failure acute [Recovered/Resolved]
  - Blood sodium decreased [Recovered/Resolved]
  - Blood potassium increased [Recovered/Resolved]
  - Blood urea increased [Recovered/Resolved]
  - Blood creatinine increased [Recovered/Resolved]
  - Blood urea nitrogen/creatinine ratio increased [Recovered/Resolved]
  - Glomerular filtration rate decreased [Recovered/Resolved]
  - Myoclonus [Recovered/Resolved]
  - Toxicity to various agents [Recovered/Resolved]
  - Tremor [Recovered/Resolved]
